FAERS Safety Report 5093244-X (Version None)
Quarter: 2006Q3

REPORT INFORMATION
  Report Type: 
  Country: None (occurrence: None)
  Receive Date: 20060830
  Receipt Date: 20060802
  Transmission Date: 20061208
  Serious: Yes (Hospitalization)
  Sender: FDA-Public Use
  Company Number: US-BOEHRINGER INGELHEIM PHARMACEUTICALS, INC.-2006-BP-08892BP

PATIENT
  Sex: Female
  Weight: 63.5 kg

DRUGS (30)
  1. MIRAPEX [Suspect]
     Indication: RESTLESS LEGS SYNDROME
     Route: 048
     Dates: start: 20030313
  2. LASIX [Concomitant]
  3. LASIX [Concomitant]
  4. DIOVAN [Concomitant]
  5. MICRO-K [Concomitant]
  6. MICRO-K [Concomitant]
  7. SYNTHROID [Concomitant]
  8. MV [Concomitant]
  9. VITAMIN E, C AND CA [Concomitant]
  10. JOINT VITAMINS, GLUCOSAMINE [Concomitant]
  11. MAGNESIUM [Concomitant]
  12. TYLENOL [Concomitant]
  13. CYLERT [Concomitant]
  14. MIRALAX [Concomitant]
  15. MIRALAX [Concomitant]
  16. CLONAZEPAM [Concomitant]
  17. CLONAZEPAM [Concomitant]
  18. OMEPRAZOLE [Concomitant]
  19. DARVOCET [Concomitant]
  20. NORVASC [Concomitant]
  21. BUMEX [Concomitant]
  22. DARVOCET [Concomitant]
  23. VIOXX [Concomitant]
  24. MOBIC [Concomitant]
  25. ASPIRIN [Concomitant]
  26. MINERAL OIL [Concomitant]
  27. FLAX [Concomitant]
  28. QUINAN [Concomitant]
  29. ELAVIL [Concomitant]
  30. COUMADIN [Concomitant]

REACTIONS (12)
  - ANAEMIA [None]
  - ARTERIOVENOUS MALFORMATION [None]
  - BARRETT'S OESOPHAGUS [None]
  - DRUG INEFFECTIVE [None]
  - EROSIVE OESOPHAGITIS [None]
  - GASTRITIS [None]
  - GASTROINTESTINAL HAEMORRHAGE [None]
  - HIATUS HERNIA [None]
  - INTESTINAL HAEMORRHAGE [None]
  - MUSCULAR WEAKNESS [None]
  - PEPTIC ULCER [None]
  - URINARY INCONTINENCE [None]
